FAERS Safety Report 9154977 (Version 2)
Quarter: 2013Q2

REPORT INFORMATION
  Report Type: Spontaneous
  Country: CA (occurrence: CA)
  Receive Date: 20130311
  Receipt Date: 20130508
  Transmission Date: 20140414
  Serious: Yes (Hospitalization, Other)
  Sender: FDA-Public Use
  Company Number: CA-PURDUE-CAN-2013-0003847

PATIENT
  Age: 43 Year
  Sex: Female
  Weight: 83.9 kg

DRUGS (7)
  1. HYDROMORPH CONTIN 24 MG [Suspect]
     Indication: PAIN
     Dosage: 2 TO 3 CAPSL, TID
     Route: 048
     Dates: start: 201109
  2. DILAUDID [Suspect]
     Indication: BREAKTHROUGH PAIN
     Dosage: 4 TO 8 MG, UNK
     Route: 048
     Dates: start: 200902
  3. HYDROMORPHONE HCL [Suspect]
     Indication: PRODUCT USED FOR UNKNOWN INDICATION
  4. CLONAZEPAM [Concomitant]
     Indication: DEPRESSION
     Dosage: 1 MG, TID
     Route: 048
  5. CLONAZEPAM [Concomitant]
     Indication: ANXIETY
  6. ZOPICLONE [Concomitant]
     Indication: SLEEP DISORDER
     Dosage: 7.5 MG, SEE TEXT
  7. PANTOLOC                           /01263204/ [Concomitant]
     Indication: GASTROINTESTINAL DISORDER
     Dosage: 40 MG, DAILY
     Route: 048

REACTIONS (20)
  - Swollen tongue [Recovered/Resolved]
  - Hospitalisation [Unknown]
  - Dyspnoea [Unknown]
  - Drug ineffective [Unknown]
  - Withdrawal syndrome [Unknown]
  - Drug diversion [Unknown]
  - Nausea [Unknown]
  - Feeling hot [Unknown]
  - Hyperhidrosis [Unknown]
  - Insomnia [Unknown]
  - Pruritus generalised [Recovered/Resolved]
  - Drooling [Unknown]
  - Rash generalised [Recovered/Resolved]
  - Erythema [Recovered/Resolved]
  - Capsule physical issue [None]
  - Capsule physical issue [None]
  - Malaise [None]
  - Night sweats [None]
  - Product substitution issue [None]
  - Rash erythematous [None]
